FAERS Safety Report 7821624-5 (Version None)
Quarter: 2011Q4

REPORT INFORMATION
  Report Type: 
  Country: None (occurrence: None)
  Receive Date: 20111018
  Receipt Date: 20110221
  Transmission Date: 20120403
  Serious: No
  Sender: FDA-Public Use
  Company Number: US-ASTRAZENECA-2011SE09951

PATIENT
  Age: 53 Year
  Sex: Male

DRUGS (2)
  1. SYMBICORT [Suspect]
     Dosage: 160/4.5 MCGS  TWO PUFFS BID
     Route: 055
  2. FLU SHOT [Concomitant]
     Dates: start: 20110201

REACTIONS (5)
  - BRONCHITIS CHRONIC [None]
  - CHILLS [None]
  - CHRONIC OBSTRUCTIVE PULMONARY DISEASE [None]
  - ASTHMA [None]
  - PYREXIA [None]
